FAERS Safety Report 14597913 (Version 1)
Quarter: 2018Q1

REPORT INFORMATION
  Report Type: Spontaneous
  Country: US (occurrence: US)
  Receive Date: 20180305
  Receipt Date: 20180305
  Transmission Date: 20180509
  Serious: No
  Sender: FDA-Public Use
  Company Number: US-PFIZER INC-2018088044

PATIENT
  Sex: Female

DRUGS (3)
  1. CRIZOTINIB [Suspect]
     Active Substance: CRIZOTINIB
     Indication: LUNG CANCER METASTATIC
     Dosage: UNK
  2. ALECTINIB. [Suspect]
     Active Substance: ALECTINIB
     Indication: LUNG CANCER METASTATIC
     Dosage: UNK
  3. BRIGATINIB [Suspect]
     Active Substance: BRIGATINIB
     Indication: LUNG CANCER METASTATIC
     Dosage: UNK

REACTIONS (1)
  - Neoplasm progression [Unknown]
